FAERS Safety Report 19029770 (Version 2)
Quarter: 2021Q1

REPORT INFORMATION
  Report Type: Spontaneous
  Country: US (occurrence: US)
  Receive Date: 20210318
  Receipt Date: 20210329
  Transmission Date: 20210420
  Serious: Yes (Death, Other)
  Sender: FDA-Public Use
  Company Number: US-BAXTER-2021BAX005411

PATIENT
  Age: 18 Year
  Sex: Female

DRUGS (3)
  1. DOXIL [Suspect]
     Active Substance: DOXORUBICIN HYDROCHLORIDE
     Indication: FIBROSARCOMA
     Route: 065
  2. VINBLASTINE [Suspect]
     Active Substance: VINBLASTINE
     Indication: FIBROSARCOMA
     Route: 065
  3. BRENTUXIMAB VEDOTIN [Suspect]
     Active Substance: BRENTUXIMAB VEDOTIN
     Indication: FIBROSARCOMA
     Route: 065

REACTIONS (7)
  - Diffuse alveolar damage [Fatal]
  - Pancytopenia [Unknown]
  - Pulmonary embolism [Unknown]
  - Cytomegalovirus viraemia [Unknown]
  - Pulmonary alveolar haemorrhage [Fatal]
  - Candida pneumonia [Fatal]
  - Multiple organ dysfunction syndrome [Unknown]
